FAERS Safety Report 6318288-9 (Version None)
Quarter: 2009Q3

REPORT INFORMATION
  Report Type: 
  Country: None (occurrence: None)
  Receive Date: 20090821
  Receipt Date: 20090813
  Transmission Date: 20100115
  Serious: Yes (Other)
  Sender: FDA-Public Use
  Company Number: DK-AVENTIS-200911846GDDC

PATIENT
  Age: 34 Year
  Sex: Female

DRUGS (3)
  1. LANTUS [Suspect]
     Route: 058
     Dates: start: 20070105
  2. FLUOXETINE [Concomitant]
     Indication: ANXIETY
     Route: 048
     Dates: start: 20060102
  3. NOVORAPID [Concomitant]
     Dosage: DOSE: VARIABLE
     Route: 058
     Dates: start: 20050509

REACTIONS (2)
  - DRUG EXPOSURE DURING PREGNANCY [None]
  - PRE-ECLAMPSIA [None]
